FAERS Safety Report 4694012-0 (Version None)
Quarter: 2005Q2

REPORT INFORMATION
  Report Type: 
  Country: None (occurrence: None)
  Receive Date: 20050616
  Receipt Date: 20050609
  Transmission Date: 20051028
  Serious: Yes (Hospitalization)
  Sender: FDA-Public Use
  Company Number: BDI-007210

PATIENT
  Sex: Male

DRUGS (1)
  1. MULTIHANCE [Suspect]
     Indication: ARTERIOGRAM CAROTID
     Dosage: 20 ML ONCE IV
     Route: 042
     Dates: start: 20050517, end: 20050517

REACTIONS (9)
  - BLISTER [None]
  - CAUSTIC INJURY [None]
  - CONTUSION [None]
  - INFUSION SITE ERYTHEMA [None]
  - INJECTION SITE EXTRAVASATION [None]
  - INJECTION SITE HAEMORRHAGE [None]
  - INJECTION SITE PAIN [None]
  - SKIN EXFOLIATION [None]
  - THERMAL BURN [None]
